FAERS Safety Report 7438833-X (Version None)
Quarter: 2011Q2

REPORT INFORMATION
  Report Type: 
  Country: None (occurrence: None)
  Receive Date: 20110426
  Receipt Date: 20110417
  Transmission Date: 20111010
  Serious: Yes (Hospitalization)
  Sender: FDA-Public Use
  Company Number: US-SANOFI-AVENTIS-2011SA023947

PATIENT
  Age: 31 Year
  Sex: Female

DRUGS (3)
  1. SOLOSTAR [Suspect]
     Dates: start: 20100401
  2. ALL OTHER THERAPEUTIC PRODUCTS [Concomitant]
  3. LANTUS [Suspect]
     Dosage: DOSE:25 UNIT(S)
     Route: 058
     Dates: start: 20100401

REACTIONS (17)
  - UNEVALUABLE EVENT [None]
  - OROPHARYNGEAL PAIN [None]
  - HEART RATE INCREASED [None]
  - DYSPNOEA [None]
  - CHILLS [None]
  - PAIN IN EXTREMITY [None]
  - GAIT DISTURBANCE [None]
  - BLOOD GLUCOSE DECREASED [None]
  - PYREXIA [None]
  - HYPOTENSION [None]
  - DRUG INEFFECTIVE [None]
  - BURNING SENSATION [None]
  - BLOOD GLUCOSE INCREASED [None]
  - HYPERHIDROSIS [None]
  - HYPOAESTHESIA [None]
  - WHEEZING [None]
  - BLOOD POTASSIUM ABNORMAL [None]
